FAERS Safety Report 10783778 (Version 1)
Quarter: 2015Q1

REPORT INFORMATION
  Report Type: Spontaneous
  Country: DE (occurrence: DE)
  Receive Date: 20150210
  Receipt Date: 20150210
  Transmission Date: 20150721
  Serious: Yes (Hospitalization)
  Sender: FDA-Public Use
  Company Number: DE-ACTAVIS-2015-01484

PATIENT
  Age: 56 Year
  Sex: Male

DRUGS (2)
  1. CLOPIDOGREL (UNKNOWN) [Suspect]
     Active Substance: CLOPIDOGREL BISULFATE
     Indication: STENT PLACEMENT
     Dosage: 75 MG, DAILY
     Route: 048
     Dates: start: 20141111, end: 20141121
  2. THIAMAZOL [Suspect]
     Active Substance: METHIMAZOLE
     Indication: HYPERTHYROIDISM
     Dosage: 10 MG, DAILY
     Route: 048
     Dates: start: 20140901, end: 20141121

REACTIONS (2)
  - Leukopenia [Recovering/Resolving]
  - Neutropenia [Recovering/Resolving]

NARRATIVE: CASE EVENT DATE: 20141120
